FAERS Safety Report 7762298-1 (Version None)
Quarter: 2011Q3

REPORT INFORMATION
  Report Type: 
  Country: None (occurrence: None)
  Receive Date: 20110920
  Receipt Date: 20110621
  Transmission Date: 20111222
  Serious: Yes (Other)
  Sender: FDA-Public Use
  Company Number: DE-ROCHE-784823

PATIENT
  Age: 64 Year
  Sex: Female

DRUGS (2)
  1. IBANDRONATE SODIUM [Suspect]
     Route: 042
     Dates: start: 20081203, end: 20100601
  2. ZOLEDRONIC ACID [Suspect]
     Route: 042
     Dates: start: 20061101, end: 20081105

REACTIONS (2)
  - FISTULA [None]
  - OSTEONECROSIS OF JAW [None]
